FAERS Safety Report 10023373 (Version 2)
Quarter: 2014Q1

REPORT INFORMATION
  Report Type: Report from Study
  Country: CN (occurrence: CN)
  Receive Date: 20140320
  Receipt Date: 20140325
  Transmission Date: 20141002
  Serious: Yes (Other)
  Sender: FDA-Public Use
  Company Number: CN-ROCHE-1368040

PATIENT
  Age: 64 Year
  Sex: Male

DRUGS (2)
  1. TRASTUZUMAB [Suspect]
     Indication: GASTRIC CANCER
     Route: 065
     Dates: start: 20121030
  2. CAPECITABINE [Suspect]
     Indication: GASTRIC CANCER
     Route: 065
     Dates: start: 20121030

REACTIONS (3)
  - Nausea [Unknown]
  - Vomiting [Unknown]
  - Aphagia [Unknown]
